FAERS Safety Report 23090801 (Version 2)
Quarter: 2023Q4

REPORT INFORMATION
  Report Type: Report from Study
  Country: US (occurrence: US)
  Receive Date: 20231020
  Receipt Date: 20231201
  Transmission Date: 20240110
  Serious: Yes (Other)
  Sender: FDA-Public Use
  Company Number: US-JNJFOC-20231030962

PATIENT
  Age: 47 Year
  Sex: Female

DRUGS (7)
  1. SPRAVATO [Suspect]
     Active Substance: ESKETAMINE
     Indication: Depression
     Dosage: 56 MG, 1 DOSE
     Dates: start: 20221008, end: 20221008
  2. SPRAVATO [Suspect]
     Active Substance: ESKETAMINE
     Dosage: 84 MG, 65 DOSES
     Dates: start: 20221010, end: 20230930
  3. SPRAVATO [Suspect]
     Active Substance: ESKETAMINE
     Dosage: RECENT DOSE
     Dates: start: 20231007, end: 20231007
  4. DOXEPIN [Concomitant]
     Active Substance: DOXEPIN
     Dosage: TOOK AROUND 22:00 THE NIGHT BEFORE (06-OCT-2023).
     Route: 065
  5. BUPROPION [Concomitant]
     Active Substance: BUPROPION
     Dosage: THAT MORNING (07-OCT-2023) SOMETIME BEFORE 10:00 PER PATIENT
     Route: 065
  6. XANAX [Concomitant]
     Active Substance: ALPRAZOLAM
     Route: 065
     Dates: end: 20230921
  7. AMBIEN [Concomitant]
     Active Substance: ZOLPIDEM TARTRATE
     Route: 065
     Dates: end: 20230921

REACTIONS (4)
  - Depressed level of consciousness [Recovered/Resolved]
  - Hypotension [Recovered/Resolved]
  - Oxygen saturation decreased [Recovered/Resolved]
  - Sedation [Recovered/Resolved]

NARRATIVE: CASE EVENT DATE: 20231007
